FAERS Safety Report 21833479 (Version 2)
Quarter: 2023Q2

REPORT INFORMATION
  Report Type: Report from Study
  Country: CN (occurrence: CN)
  Receive Date: 20230107
  Receipt Date: 20230407
  Transmission Date: 20230722
  Serious: Yes (Death, Other)
  Sender: FDA-Public Use
  Company Number: CN-002147023-NVSC2020CN345030

PATIENT
  Age: 76 Year
  Sex: Male
  Weight: 71 kg

DRUGS (7)
  1. ENTRESTO [Suspect]
     Active Substance: SACUBITRIL\VALSARTAN
     Indication: Cardiac failure
     Dosage: 50 MG, BID
     Route: 048
     Dates: start: 20200608, end: 20200907
  2. OMEPRAZOLE SODIUM [Concomitant]
     Active Substance: OMEPRAZOLE SODIUM
     Indication: Stress ulcer
     Dosage: 40 MG, BID
     Route: 065
     Dates: start: 20200908
  3. LEVOFLOXACIN HYDROCHLORIDE [Concomitant]
     Active Substance: LEVOFLOXACIN HYDROCHLORIDE
     Indication: Inflammation
     Dosage: 0.2 G, QD
     Route: 065
     Dates: start: 20200908
  4. BUDESONIDE [Concomitant]
     Active Substance: BUDESONIDE
     Indication: Productive cough
     Dosage: 1 MG, TID (SUSPENSION)
     Route: 065
     Dates: start: 20200908
  5. CHYMOTRYPSIN [Concomitant]
     Active Substance: CHYMOTRYPSIN
     Indication: Productive cough
     Dosage: 400 IU, TID (NEEDLE)
     Route: 065
     Dates: start: 20200908
  6. FUROSEMIDE [Concomitant]
     Active Substance: FUROSEMIDE
     Indication: Cardiac failure
     Dosage: 20 MG, QD
     Route: 065
     Dates: start: 20200527
  7. NOREPINEPHRINE BITARTRATE [Concomitant]
     Active Substance: NOREPINEPHRINE BITARTRATE
     Indication: Shock
     Dosage: 4 MG, QID
     Route: 065
     Dates: start: 20200909

REACTIONS (6)
  - Cardiac failure chronic [Fatal]
  - Wheezing [Fatal]
  - Chest pain [Fatal]
  - Decreased appetite [Fatal]
  - Pneumonia [Fatal]
  - Multiple organ dysfunction syndrome [Unknown]

NARRATIVE: CASE EVENT DATE: 20200830
